FAERS Safety Report 7692054 (Version 4)
Quarter: 2012Q4

REPORT INFORMATION
  Report Type: 
  Country: US (occurrence: US)
  Receive Date: 20101204
  Receipt Date: 20121024
  Transmission Date: 20130627
  Serious: Yes (Hospitalization)
  Sender: FDA-Public Use
  Company Number: US-BAYER-201042054NA

PATIENT
  Age: 21 Year
  Sex: Female
  Weight: 158.73 kg

DRUGS (8)
  1. YAZ [Suspect]
     Indication: PRODUCT USED FOR UNKNOWN INDICATION
     Route: 048
  2. YASMIN [Suspect]
     Indication: CONTRACEPTION
     Dosage: UNK
     Route: 048
     Dates: start: 2001, end: 2005
  3. YASMIN [Suspect]
     Indication: HORMONE REPLACEMENT THERAPY
  4. ALLEGRA [Concomitant]
  5. LEVOTHROID [Concomitant]
  6. ADVAIR [Concomitant]
  7. ALDACTONE [Concomitant]
  8. PROSCAR [Concomitant]

REACTIONS (4)
  - Deep vein thrombosis [Unknown]
  - Superior sagittal sinus thrombosis [Not Recovered/Not Resolved]
  - VIIth nerve paralysis [Unknown]
  - Memory impairment [Unknown]
